FAERS Safety Report 7624152-5 (Version None)
Quarter: 2011Q3

REPORT INFORMATION
  Report Type: 
  Country: None (occurrence: None)
  Receive Date: 20110720
  Receipt Date: 20110711
  Transmission Date: 20111222
  Serious: Yes (Death, Life-Threatening, Hospitalization)
  Sender: FDA-Public Use
  Company Number: US-JNJFOC-20110705771

PATIENT
  Sex: Female

DRUGS (10)
  1. AMLODIPINE BESYLATE [Suspect]
     Indication: PRODUCT USED FOR UNKNOWN INDICATION
     Route: 048
     Dates: start: 20091209
  2. ZEMPLAR [Concomitant]
     Route: 048
  3. ASPIRIN [Concomitant]
     Route: 048
  4. ALLOPURINOL [Suspect]
     Indication: BLOOD URIC ACID
     Dates: start: 20091123
  5. LIPITOR [Concomitant]
     Route: 048
  6. FEBUXOSTAT [Suspect]
     Indication: GOUT
     Dates: start: 20091228
  7. FUROSEMIDE [Concomitant]
     Route: 048
  8. LABETALOL HCL [Concomitant]
     Route: 048
  9. IBUPROFEN [Suspect]
     Indication: PRODUCT USED FOR UNKNOWN INDICATION
  10. LISINOPRIL [Concomitant]
     Route: 048

REACTIONS (2)
  - RENAL FAILURE CHRONIC [None]
  - TOXIC EPIDERMAL NECROLYSIS [None]
